FAERS Safety Report 11004135 (Version 1)
Quarter: 2015Q2

REPORT INFORMATION
  Report Type: Spontaneous
  Country: US (occurrence: None)
  Receive Date: 20150408
  Receipt Date: 20150408
  Transmission Date: 20150821
  Serious: Yes (Disabling)
  Sender: FDA-Public Use
  Company Number: None

PATIENT
  Age: 55 Year
  Sex: Female
  Weight: 61.24 kg

DRUGS (4)
  1. ESTRADIOL. [Concomitant]
     Active Substance: ESTRADIOL
  2. MEDROPROGESTERONE [Concomitant]
  3. CLARITIN-D 12 HOUR [Concomitant]
     Active Substance: LORATADINE\PSEUDOEPHEDRINE SULFATE
  4. BOTOX [Suspect]
     Active Substance: ONABOTULINUMTOXINA
     Indication: SKIN COSMETIC PROCEDURE
     Dosage: EVERY 4 MONTHS
     Route: 030
     Dates: start: 20141008

REACTIONS (7)
  - Asthenia [None]
  - Neck pain [None]
  - Myalgia [None]
  - Musculoskeletal stiffness [None]
  - Fatigue [None]
  - Musculoskeletal pain [None]
  - Mobility decreased [None]

NARRATIVE: CASE EVENT DATE: 20141008
